FAERS Safety Report 19732537 (Version 2)
Quarter: 2021Q3

REPORT INFORMATION
  Report Type: Spontaneous
  Country: JP (occurrence: JP)
  Receive Date: 20210822
  Receipt Date: 20210903
  Transmission Date: 20211014
  Serious: Yes (Hospitalization, Other)
  Sender: FDA-Public Use
  Company Number: JP-JNJFOC-20210829469

PATIENT
  Age: 62 Year
  Sex: Female

DRUGS (8)
  1. OXYGEN. [Concomitant]
     Active Substance: OXYGEN
     Dosage: 2?3 L
     Route: 055
     Dates: start: 2021, end: 2021
  2. OPSUMIT [Suspect]
     Active Substance: MACITENTAN
     Indication: PULMONARY ARTERIAL HYPERTENSION
     Route: 048
     Dates: start: 20170622
  3. FUROSEMIDE. [Concomitant]
     Active Substance: FUROSEMIDE
     Route: 065
     Dates: end: 2021
  4. OXYGEN. [Concomitant]
     Active Substance: OXYGEN
     Dosage: 2?3 L
     Route: 055
  5. OXYGEN. [Concomitant]
     Active Substance: OXYGEN
     Dosage: 5 L
     Route: 055
     Dates: start: 2021, end: 2021
  6. FUROSEMIDE. [Concomitant]
     Active Substance: FUROSEMIDE
     Route: 065
     Dates: start: 2021
  7. TOLVAPTAN [Concomitant]
     Active Substance: TOLVAPTAN
  8. METHYLPREDNISOLONE SODIUM SUCCINATE. [Concomitant]
     Active Substance: METHYLPREDNISOLONE SODIUM SUCCINATE

REACTIONS (7)
  - Loss of personal independence in daily activities [Not Recovered/Not Resolved]
  - Rhabdomyolysis [Recovered/Resolved]
  - Contusion [Recovering/Resolving]
  - Pneumonia [Recovering/Resolving]
  - Fall [Recovered/Resolved]
  - Cardiac failure [Recovering/Resolving]
  - Asthma [Recovering/Resolving]

NARRATIVE: CASE EVENT DATE: 202107
